FAERS Safety Report 5322681-0 (Version None)
Quarter: 2007Q2

REPORT INFORMATION
  Report Type: 
  Country: None (occurrence: None)
  Receive Date: 20070511
  Receipt Date: 20061220
  Transmission Date: 20071010
  Serious: No
  Sender: FDA-Public Use
  Company Number: US-BRISTOL-MYERS SQUIBB COMPANY-13619333

PATIENT
  Sex: Female

DRUGS (1)
  1. LAC-HYDRIN [Suspect]

REACTIONS (2)
  - ERYTHEMA [None]
  - SKIN WRINKLING [None]
